FAERS Safety Report 10470684 (Version 2)
Quarter: 2014Q3

REPORT INFORMATION
  Report Type: Spontaneous
  Country: US (occurrence: US)
  Receive Date: 20140923
  Receipt Date: 20140923
  Transmission Date: 20150326
  Serious: Yes (Hospitalization)
  Sender: FDA-Public Use
  Company Number: US-GLAXOSMITHKLINE-A0867513A

PATIENT
  Sex: Male

DRUGS (12)
  1. ZOCOR [Concomitant]
     Active Substance: SIMVASTATIN
  2. PROSCAR [Concomitant]
     Active Substance: FINASTERIDE
  3. ZOLOFT [Concomitant]
     Active Substance: SERTRALINE HYDROCHLORIDE
  4. VALSARTAN. [Concomitant]
     Active Substance: VALSARTAN
  5. ASPIRIN. [Concomitant]
     Active Substance: ASPIRIN
  6. ATENOLOL. [Concomitant]
     Active Substance: ATENOLOL
  7. HYDROCHLOROTHIAZIDE SPIRONOLACTONE [Concomitant]
  8. TROSPIUM CHLORIDE. [Concomitant]
     Active Substance: TROSPIUM CHLORIDE
  9. AVANDIA [Suspect]
     Active Substance: ROSIGLITAZONE MALEATE
     Indication: TYPE 2 DIABETES MELLITUS
     Route: 048
     Dates: start: 20061004, end: 200708
  10. CARDURA [Concomitant]
     Active Substance: DOXAZOSIN MESYLATE
  11. FLUNISOLIDE. [Concomitant]
     Active Substance: FLUNISOLIDE
  12. COLACE [Concomitant]
     Active Substance: DOCUSATE SODIUM

REACTIONS (8)
  - Convulsion [Unknown]
  - Myocardial ischaemia [Unknown]
  - Lacunar infarction [Unknown]
  - Cardiogenic shock [Unknown]
  - Coronary artery disease [Unknown]
  - Cardiac failure congestive [Not Recovered/Not Resolved]
  - Cerebrovascular accident [Unknown]
  - Cerebral infarction [Unknown]
